FAERS Safety Report 5878552-4 (Version None)
Quarter: 2008Q3

REPORT INFORMATION
  Report Type: 
  Country: None (occurrence: None)
  Receive Date: 20080911
  Receipt Date: 20080903
  Transmission Date: 20090109
  Serious: Yes (Congenital Anomaly, Other)
  Sender: FDA-Public Use
  Company Number: FR-ABBOTT-08P-056-0474292-00

PATIENT
  Sex: Female

DRUGS (4)
  1. DEPAKENE [Suspect]
     Indication: DRUG EXPOSURE DURING PREGNANCY
     Route: 064
  2. FOLIC ACID [Suspect]
     Indication: DRUG EXPOSURE DURING PREGNANCY
     Route: 064
  3. ISOPHANE INSULIN [Suspect]
     Indication: DRUG EXPOSURE DURING PREGNANCY
     Route: 064
  4. INSULIN HUMAN [Suspect]
     Indication: DRUG EXPOSURE DURING PREGNANCY
     Route: 064

REACTIONS (25)
  - ABNORMAL PALMAR/PLANTAR CREASES [None]
  - BETA HAEMOLYTIC STREPTOCOCCAL INFECTION [None]
  - CARDIAC ANEURYSM [None]
  - CEREBRAL VENTRICLE DILATATION [None]
  - CLINODACTYLY [None]
  - CONGENITAL AORTIC ANOMALY [None]
  - CONGENITAL NOSE MALFORMATION [None]
  - CONGENITAL ORAL MALFORMATION [None]
  - DELAYED FONTANELLE CLOSURE [None]
  - DISTURBANCE IN ATTENTION [None]
  - DRUG EXPOSURE DURING PREGNANCY [None]
  - DYSMORPHISM [None]
  - EAR MALFORMATION [None]
  - FOETAL DISTRESS SYNDROME [None]
  - HEART DISEASE CONGENITAL [None]
  - HYPERTELORISM OF ORBIT [None]
  - HYPOTONIA NEONATAL [None]
  - MENTAL RETARDATION [None]
  - NIPPLE DISORDER [None]
  - PLAGIOCEPHALY [None]
  - POOR SUCKING REFLEX [None]
  - SKULL MALFORMATION [None]
  - SPEECH DISORDER [None]
  - STRABISMUS [None]
  - WEIGHT DECREASE NEONATAL [None]
